FAERS Safety Report 10629593 (Version 2)
Quarter: 2015Q1

REPORT INFORMATION
  Report Type: Spontaneous
  Country: US (occurrence: US)
  Receive Date: 20141205
  Receipt Date: 20150210
  Transmission Date: 20150720
  Serious: Yes (Other)
  Sender: FDA-Public Use
  Company Number: US-BRISTOL-MYERS SQUIBB COMPANY-21452875

PATIENT
  Sex: Female
  Weight: 97.5 kg

DRUGS (1)
  1. ABILIFY [Suspect]
     Active Substance: ARIPIPRAZOLE
     Indication: DEPRESSION
     Dosage: 15MG
     Route: 048

REACTIONS (3)
  - Wrong technique in drug usage process [Unknown]
  - Off label use [Unknown]
  - Seizure [Unknown]
